FAERS Safety Report 9005587 (Version 5)
Quarter: 2013Q2

REPORT INFORMATION
  Report Type: Spontaneous
  Country: US (occurrence: US)
  Receive Date: 20130109
  Receipt Date: 20130610
  Transmission Date: 20140414
  Serious: Yes (Hospitalization, Other)
  Sender: FDA-Public Use
  Company Number: US-009507513-1203USA00547

PATIENT
  Sex: Female
  Weight: 74.38 kg

DRUGS (2)
  1. FOSAMAX [Suspect]
     Indication: OSTEOPOROSIS
     Dosage: 10 MG, QD
     Route: 048
     Dates: start: 19971126, end: 200012
  2. FOSAMAX [Suspect]
     Indication: OSTEOPENIA
     Dosage: 70 MG, QW
     Route: 048
     Dates: start: 200101

REACTIONS (53)
  - Femur fracture [Recovered/Resolved]
  - Intramedullary rod insertion [Unknown]
  - Femur fracture [Unknown]
  - Ulna fracture [Unknown]
  - Chest pain [Unknown]
  - Femur fracture [Unknown]
  - Intramedullary rod insertion [Unknown]
  - Removal of internal fixation [Unknown]
  - Spinal fusion surgery [Unknown]
  - Radius fracture [Unknown]
  - Osteomyelitis [Unknown]
  - Fall [Unknown]
  - Fall [Unknown]
  - Intramedullary rod insertion [Unknown]
  - Open reduction of fracture [Unknown]
  - Anaemia postoperative [Unknown]
  - Drug hypersensitivity [Unknown]
  - Fall [Unknown]
  - Fall [Unknown]
  - Ankle fracture [Unknown]
  - Fracture delayed union [Unknown]
  - Foot fracture [Unknown]
  - Dental implantation [Unknown]
  - Hepatitis C [Unknown]
  - Rib fracture [Unknown]
  - Essential hypertension [Not Recovered/Not Resolved]
  - Depression [Unknown]
  - Low turnover osteopathy [Unknown]
  - Intervertebral disc degeneration [Unknown]
  - Rib fracture [Unknown]
  - Fractured sacrum [Unknown]
  - Decubitus ulcer [Unknown]
  - Osteoarthritis [Unknown]
  - Lumbar spinal stenosis [Unknown]
  - Spinal osteoarthritis [Unknown]
  - Bronchitis [Unknown]
  - Chest pain [Unknown]
  - Lower limb fracture [Unknown]
  - Transient ischaemic attack [Unknown]
  - Foot fracture [Unknown]
  - Blood cholesterol increased [Unknown]
  - Asthma [Unknown]
  - Diabetes mellitus [Unknown]
  - Tooth extraction [Unknown]
  - Tendon injury [Unknown]
  - Foot fracture [Unknown]
  - Ligament sprain [Unknown]
  - Ankle fracture [Unknown]
  - Foot fracture [Unknown]
  - Gastrooesophageal reflux disease [Not Recovered/Not Resolved]
  - Headache [Not Recovered/Not Resolved]
  - Myalgia [Unknown]
  - Back pain [Unknown]
